FAERS Safety Report 12449224 (Version 1)
Quarter: 2016Q2

REPORT INFORMATION
  Report Type: Spontaneous
  Country: FR (occurrence: FR)
  Receive Date: 20160608
  Receipt Date: 20160608
  Transmission Date: 20160815
  Serious: Yes (Hospitalization)
  Sender: FDA-Public Use
  Company Number: FR-GUERBET LLC-1053561

PATIENT
  Age: 54 Year
  Sex: Male

DRUGS (11)
  1. ALDACTONE [Suspect]
     Active Substance: SPIRONOLACTONE
     Route: 048
     Dates: start: 20160221, end: 20160318
  2. BISOPROLOL [Concomitant]
     Active Substance: BISOPROLOL
  3. DIFFU K(POTASSIUM CHLORIDE) [Concomitant]
  4. OPTIRAY [Suspect]
     Active Substance: IOVERSOL
     Indication: ARTERIOGRAM CORONARY
     Route: 042
     Dates: start: 20160314, end: 20160314
  5. RAMIPRIL. [Suspect]
     Active Substance: RAMIPRIL
     Route: 048
     Dates: start: 20160221, end: 20160321
  6. AUGMENTIN [Concomitant]
     Active Substance: AMOXICILLIN\CLAVULANATE POTASSIUM
  7. CLAMOXYL(AMOXICILLIN) [Concomitant]
  8. ORACILLINE(PHENOXYMETHYLPENICILLIN) [Concomitant]
  9. LASILIX(FUROSEMIDE) [Suspect]
     Active Substance: FUROSEMIDE
     Route: 048
  10. KARDEGIC(ACETYLSALICYLATE LYSINE) [Concomitant]
  11. DALACINE(CLINDAMYCIN HYDROCHLORIDE) [Concomitant]

REACTIONS (1)
  - Acute kidney injury [Recovered/Resolved]

NARRATIVE: CASE EVENT DATE: 20160318
